FAERS Safety Report 21561529 (Version 2)
Quarter: 2022Q4

REPORT INFORMATION
  Report Type: Spontaneous
  Country: US (occurrence: US)
  Receive Date: 20221107
  Receipt Date: 20221111
  Transmission Date: 20230113
  Serious: Yes (Other)
  Sender: FDA-Public Use
  Company Number: US-TEVA-2022-US-2822582

PATIENT
  Age: 85 Year
  Sex: Female

DRUGS (2)
  1. VENLAFAXINE [Suspect]
     Active Substance: VENLAFAXINE HYDROCHLORIDE
     Indication: Depression
     Route: 065
  2. VENLAFAXINE [Suspect]
     Active Substance: VENLAFAXINE HYDROCHLORIDE
     Route: 065

REACTIONS (11)
  - Bradycardia [Unknown]
  - Withdrawal syndrome [Unknown]
  - Heart rate decreased [Unknown]
  - Tachycardia [Unknown]
  - Tremor [Unknown]
  - Nausea [Unknown]
  - Malaise [Unknown]
  - Dizziness [Unknown]
  - Dizziness [Unknown]
  - Wrong technique in product usage process [Unknown]
  - Drug ineffective [Unknown]
